FAERS Safety Report 20491503 (Version 2)
Quarter: 2022Q2

REPORT INFORMATION
  Report Type: Other
  Country: GB (occurrence: GB)
  Receive Date: 20220218
  Receipt Date: 20220425
  Transmission Date: 20220720
  Serious: No
  Sender: FDA-Public Use
  Company Number: GB-002147023-NVSC2022GB028428

PATIENT

DRUGS (1)
  1. XOLAIR [Suspect]
     Active Substance: OMALIZUMAB
     Indication: Chronic spontaneous urticaria
     Dosage: UNK (THIRD DOSE)
     Route: 058

REACTIONS (2)
  - Treatment failure [Unknown]
  - No adverse event [Unknown]
